FAERS Safety Report 16520844 (Version 44)
Quarter: 2023Q2

REPORT INFORMATION
  Report Type: Report from Study
  Country: GB (occurrence: GB)
  Receive Date: 20190702
  Receipt Date: 20230607
  Transmission Date: 20230722
  Serious: Yes (Death, Hospitalization, Other)
  Sender: FDA-Public Use
  Company Number: GB-ROCHE-1836249

PATIENT
  Age: 33 Year
  Sex: Female

DRUGS (304)
  1. TRASTUZUMAB [Suspect]
     Active Substance: TRASTUZUMAB
     Indication: HER2 positive breast cancer
     Dosage: 280 MILLIGRAM, START 31-JAN-2018
     Route: 042
     Dates: end: 20180131
  2. TRASTUZUMAB [Suspect]
     Active Substance: TRASTUZUMAB
     Dosage: 567 MILLIGRAM, QD (LOADING DOSE)START DATE: 09-JUN-2016
     Route: 042
     Dates: end: 20160609
  3. TRASTUZUMAB [Suspect]
     Active Substance: TRASTUZUMAB
     Dosage: 420 MILLIGRAM, Q3W (3 TIMES/WK), START DATE: 01-JUL-2016
     Route: 042
     Dates: end: 20200727
  4. TRASTUZUMAB [Suspect]
     Active Substance: TRASTUZUMAB
     Dosage: 473 MILLIGRAM, Q3W, LOADING DOSE (START 19-MAY-2017)
     Route: 042
     Dates: end: 20171228
  5. TRASTUZUMAB [Suspect]
     Active Substance: TRASTUZUMAB
     Dosage: 420 MILLIGRAM, Q3W (3 TIMES/WK)START07-SEP-2016
     Route: 042
     Dates: end: 20160926
  6. TRASTUZUMAB [Suspect]
     Active Substance: TRASTUZUMAB
     Dosage: 420 MILLIGRAM, Q3W (3 TIMES/WK)START 24-FEB-2017
     Route: 042
     Dates: end: 20170407
  7. TRASTUZUMAB [Suspect]
     Active Substance: TRASTUZUMAB
     Dosage: 452 MILLIGRAM, Q3W, START02-DEC-2016
     Route: 042
     Dates: end: 20170203
  8. TRASTUZUMAB [Suspect]
     Active Substance: TRASTUZUMAB
     Dosage: 452 MILLIGRAM, Q3W (11-NOV-2016
     Route: 042
     Dates: end: 20170519
  9. TRASTUZUMAB [Suspect]
     Active Substance: TRASTUZUMAB
     Dosage: 452 MILLIGRAM, Q3W START DATE: 21-OCT-2016
     Route: 042
     Dates: end: 20161111
  10. TRASTUZUMAB [Suspect]
     Active Substance: TRASTUZUMAB
     Dosage: 473 MILLIGRAM, Q3W (START12-JUN-2017
     Route: 042
     Dates: end: 20171228
  11. TRASTUZUMAB [Suspect]
     Active Substance: TRASTUZUMAB
     Dosage: 452 MILLIGRAM, Q3W (3 TIMES/WK)START28-APR-2017
     Route: 042
     Dates: end: 20170519
  12. TRASTUZUMAB [Suspect]
     Active Substance: TRASTUZUMAB
     Dosage: 441MG, Q3W (441MG, 3 TIMES/WK)START07-SEP-2016
     Route: 042
     Dates: end: 20160926
  13. TRASTUZUMAB [Suspect]
     Active Substance: TRASTUZUMAB
     Dosage: 431MG, Q3W (430.5MG, 3TIMES/WK)START 24-FEB-2017
     Route: 042
     Dates: end: 20170407
  14. TRASTUZUMAB [Suspect]
     Active Substance: TRASTUZUMAB
     Dosage: 567 MILLIGRAM, Q3W (567 MILLIGRAM, Q3WK),START DATE: 09-JUN-2016
     Route: 042
     Dates: end: 20160609
  15. TRASTUZUMAB [Suspect]
     Active Substance: TRASTUZUMAB
     Dosage: 441 MILLIGRAM (441 MILLIGRAM), START 02-DEC-2016
     Route: 042
     Dates: end: 20170203
  16. TRASTUZUMAB [Suspect]
     Active Substance: TRASTUZUMAB
     Dosage: 420 MILLIGRAM, Q3W, START 02-DEC-2016
     Route: 042
     Dates: end: 20170203
  17. TRASTUZUMAB [Suspect]
     Active Substance: TRASTUZUMAB
     Dosage: 1354.5MG(451.5MG,3TIME/WK(CUM DOSE21680.062)
     Route: 042
     Dates: end: 20170519
  18. TRASTUZUMAB [Suspect]
     Active Substance: TRASTUZUMAB
     Dosage: 1354.5MG(451.5MG,3 TIMES/WK(CUM DOSE:54180MG)
     Route: 042
     Dates: end: 20170519
  19. TRASTUZUMAB [Suspect]
     Active Substance: TRASTUZUMAB
     Dosage: 1354.5MG,QW(451.5MG,3TIMES/WK (CUM DOSE:17608.5MG)
     Route: 042
     Dates: end: 20161111
  20. TRASTUZUMAB [Suspect]
     Active Substance: TRASTUZUMAB
     Dosage: 441 MILLIGRAM, Q3W, START DATE: 02-FEB-2016
     Route: 042
     Dates: end: 20160203
  21. TRASTUZUMAB [Suspect]
     Active Substance: TRASTUZUMAB
     Dosage: 1354.5MG(451.5MG, 3 TIMES/WK(CUM DOSE:5743.562MG)
     Route: 042
     Dates: end: 20170203
  22. TRASTUZUMAB [Suspect]
     Active Substance: TRASTUZUMAB
     Dosage: 1260MG(42MG,3TIME/WK,START DATE: 01-JUL-2016
     Route: 042
  23. TRASTUZUMAB [Suspect]
     Active Substance: TRASTUZUMAB
     Dosage: 1323MG(441MG)START DATE: 07-SEP-2016
     Route: 042
     Dates: end: 20160926
  24. TRASTUZUMAB [Suspect]
     Active Substance: TRASTUZUMAB
     Dosage: 472.5MG, Q3W, (CUM DOSE7312.5MG),START 12-JUN-2017
     Route: 042
  25. TRASTUZUMAB [Suspect]
     Active Substance: TRASTUZUMAB
     Dosage: 280MG, Q3W,(CUM DOSE: 7440.5557MG)
     Route: 042
  26. TRASTUZUMAB [Suspect]
     Active Substance: TRASTUZUMAB
     Dosage: 441 MILLIGRAM(441 MG (DOSAGE FORM: 200) START DATE: 02-FEB-2016
     Route: 042
     Dates: end: 20170203
  27. TRASTUZUMAB [Suspect]
     Active Substance: TRASTUZUMAB
     Dosage: 1417.5 MILLIGRAM(CUM DOSE: 65812.5MG)
     Route: 042
  28. TRASTUZUMAB [Suspect]
     Active Substance: TRASTUZUMAB
     Dosage: 1260 MILLIGRAM, Q3W, START DATE: 07-SEP-2016
     Route: 042
     Dates: end: 20160926
  29. TRASTUZUMAB [Suspect]
     Active Substance: TRASTUZUMAB
     Dosage: 1290MG(CUM DOSE: 39997.68MG)
     Route: 042
  30. TRASTUZUMAB [Suspect]
     Active Substance: TRASTUZUMAB
     Dosage: 1260MG,QW(CUM DOSE: 39067.5 MG)
     Route: 042
     Dates: end: 20170407
  31. TRASTUZUMAB [Suspect]
     Active Substance: TRASTUZUMAB
     Dosage: (CUMULATIVE DOSE: 66965.0 MG), START 31-JAN-2018
     Route: 042
  32. TRASTUZUMAB [Suspect]
     Active Substance: TRASTUZUMAB
     Dosage: UNK
     Route: 048
  33. TRASTUZUMAB [Suspect]
     Active Substance: TRASTUZUMAB
     Dosage: UNK (START : 19-MAY-2017)
     Route: 048
     Dates: end: 20171228
  34. TRASTUZUMAB [Suspect]
     Active Substance: TRASTUZUMAB
     Dosage: 840 MILLIGRAM, QW
     Route: 042
     Dates: end: 20180131
  35. TRASTUZUMAB [Suspect]
     Active Substance: TRASTUZUMAB
     Dosage: 441 MILLIGRAM, Q3W, START DATE: 02-DEC-2016
     Route: 042
     Dates: end: 20170203
  36. TRASTUZUMAB [Suspect]
     Active Substance: TRASTUZUMAB
     Dosage: UNK MILLIGRAM, START DATE: 28-APR-2017
     Route: 065
     Dates: end: 20170519
  37. TRASTUZUMAB [Suspect]
     Active Substance: TRASTUZUMAB
     Dosage: 441 MILLIGRAM, Q3W, START DATE: 07-SEP-2016
     Route: 042
     Dates: end: 20160926
  38. TRASTUZUMAB [Suspect]
     Active Substance: TRASTUZUMAB
     Dosage: UNK MILLIGRAM, START DATE: 24-FEB-2017
     Route: 065
     Dates: end: 20170407
  39. TRASTUZUMAB [Suspect]
     Active Substance: TRASTUZUMAB
     Dosage: UNK,LOADING DOSE, START DATE: 19-MAY-2017
     Route: 065
     Dates: end: 20171228
  40. TRASTUZUMAB [Suspect]
     Active Substance: TRASTUZUMAB
     Dosage: UNK, START DATE: 12-JUN-2017
     Route: 065
     Dates: end: 20171228
  41. TRASTUZUMAB [Suspect]
     Active Substance: TRASTUZUMAB
     Dosage: UNK, START DATE: 11-NOV-2016
     Route: 065
     Dates: end: 20170519
  42. TRASTUZUMAB [Suspect]
     Active Substance: TRASTUZUMAB
     Dosage: 280 MILLIGRAM, START DATE: 31-JAN-2018
     Route: 065
  43. TRASTUZUMAB [Suspect]
     Active Substance: TRASTUZUMAB
     Dosage: 73 MILLIGRAM, Q3W, START DATE: 12-JUN-2017
     Route: 042
  44. TRASTUZUMAB [Suspect]
     Active Substance: TRASTUZUMAB
     Dosage: 1260 MILLIGRAM, Q3W, START DATE: 24-FEB-2017
     Route: 042
  45. TRASTUZUMAB [Suspect]
     Active Substance: TRASTUZUMAB
     Dosage: 1292 MILLIGRAM, Q3W, START DATE: 24-FEB-2017
     Route: 042
     Dates: end: 20170407
  46. TRASTUZUMAB [Suspect]
     Active Substance: TRASTUZUMAB
     Dosage: 1355 MILLIGRAM, Q3W, START DATE: 28-APR-2017
     Route: 042
     Dates: end: 20170519
  47. TRASTUZUMAB [Suspect]
     Active Substance: TRASTUZUMAB
     Dosage: 1418 MILLIGRAM, Q3W, START DATE: 12-JUN-2017
     Route: 042
     Dates: end: 20171228
  48. TRASTUZUMAB [Suspect]
     Active Substance: TRASTUZUMAB
     Dosage: 441 MILLIGRAM, START DATE: 02-FEB-2016
     Route: 042
     Dates: end: 20160203
  49. TRASTUZUMAB [Suspect]
     Active Substance: TRASTUZUMAB
     Dosage: 1355 MILLIGRAM, Q3W, START DATE: 11-NOV-2016
     Route: 042
     Dates: end: 20170519
  50. TRASTUZUMAB [Suspect]
     Active Substance: TRASTUZUMAB
     Dosage: 280 MILLIGRAM, Q3W (START DATE: 9-JUN-2016)
     Route: 042
     Dates: end: 20160609
  51. DOCETAXEL [Suspect]
     Active Substance: DOCETAXEL
     Indication: HER2 positive breast cancer
     Dosage: 130 MILLIGRAM, Q3W (START 01-JUL-2016)
     Route: 042
     Dates: end: 20160727
  52. DOCETAXEL [Suspect]
     Active Substance: DOCETAXEL
     Dosage: 110 MILLIGRAM, Q3W, START 07-SEP-2016
     Route: 042
     Dates: end: 20161021
  53. DOCETAXEL [Suspect]
     Active Substance: DOCETAXEL
     Dosage: 108 MILLIGRAM, Q3W, START 11-NOV-2016
     Route: 042
     Dates: end: 20161111
  54. DOCETAXEL [Suspect]
     Active Substance: DOCETAXEL
     Dosage: 1 GRAM, START 16-JUN-2017
     Route: 042
  55. DOCETAXEL [Suspect]
     Active Substance: DOCETAXEL
     Dosage: 500 MILLIGRAM, BID, START 17-JUN-2017
     Route: 042
  56. DOCETAXEL [Suspect]
     Active Substance: DOCETAXEL
     Dosage: UNK UNK, Q3W, START 07-SEP-2016
     Route: 042
     Dates: end: 20161021
  57. DOCETAXEL [Suspect]
     Active Substance: DOCETAXEL
     Dosage: 130 MILLIGRAM, Q3W, START DATE: 27-JUL-2016
     Route: 042
  58. DOCETAXEL [Suspect]
     Active Substance: DOCETAXEL
     Dosage: 1 NANOGRAM, START DATE: 16-JUN-2017
     Route: 042
  59. DOCETAXEL [Suspect]
     Active Substance: DOCETAXEL
     Dosage: 110 MG, ONCE EVERY 3 WK, START DATE: 02-FEB-2016
     Route: 042
     Dates: end: 20160203
  60. DOCETAXEL [Suspect]
     Active Substance: DOCETAXEL
     Dosage: 500 MILLIGRAM, BID, START DATE: 21-OCT-2016
     Route: 042
  61. DOCETAXEL [Suspect]
     Active Substance: DOCETAXEL
     Dosage: 130 MILLIGRAM, Q3W (START DATE:(17-JUL-2016)
     Route: 042
  62. DOCETAXEL [Suspect]
     Active Substance: DOCETAXEL
     Dosage: 500 MILLIGRAM, BID
     Route: 042
  63. DOCETAXEL [Suspect]
     Active Substance: DOCETAXEL
     Dosage: 10 MILLIGRAM (10 MILLIGRAMEVERY 3WEEKS)
     Route: 042
  64. TAMOXIFEN [Suspect]
     Active Substance: TAMOXIFEN
     Indication: HER2 positive breast cancer
     Dosage: 20 MILLIGRAM, QD (START 23-JUN-2017)
     Route: 048
     Dates: end: 20171228
  65. TAMOXIFEN [Suspect]
     Active Substance: TAMOXIFEN
     Dosage: UNK, QD(START 13-FEB-2018)
     Route: 048
     Dates: end: 20180605
  66. TAMOXIFEN [Suspect]
     Active Substance: TAMOXIFEN
     Dosage: 20 MILLIGRAM, QD (20 MILLIGRAM, QD) (START 13-FEB-2018)
     Route: 048
     Dates: end: 20180605
  67. TAMOXIFEN [Suspect]
     Active Substance: TAMOXIFEN
     Dosage: 20 MILLIGRAM, QD (20 MILLIGRAM, QD)
     Route: 048
     Dates: end: 20181228
  68. TAMOXIFEN [Suspect]
     Active Substance: TAMOXIFEN
     Dosage: UNK, START 13-FEB-2018
     Route: 048
     Dates: end: 20180605
  69. TAMOXIFEN [Suspect]
     Active Substance: TAMOXIFEN
     Dosage: UNK, START: 13-FEB-2018,MOST RECENT DOSE ON 05/JUN/2018
     Route: 048
     Dates: end: 20180605
  70. ANASTROZOLE [Suspect]
     Active Substance: ANASTROZOLE
     Indication: Breast cancer metastatic
     Dosage: 1 MILLIGRAM, QD (START 06-JUN-2018)
     Route: 048
     Dates: end: 20190904
  71. ANASTROZOLE [Suspect]
     Active Substance: ANASTROZOLE
     Indication: HER2 positive breast cancer
     Dosage: UNK
     Route: 048
  72. ANASTROZOLE [Suspect]
     Active Substance: ANASTROZOLE
     Dosage: 1 MILLIGRAM, QD(START 06-JUN-2018)
     Route: 048
  73. ANASTROZOLE [Suspect]
     Active Substance: ANASTROZOLE
     Dosage: UNK
     Route: 065
     Dates: end: 20190904
  74. ANASTROZOLE [Suspect]
     Active Substance: ANASTROZOLE
     Dosage: 1 MILLIGRAM, QD (START: 06-JUN-2018)
     Route: 048
     Dates: end: 20190904
  75. TAMOXIFEN CITRATE [Suspect]
     Active Substance: TAMOXIFEN CITRATE
     Indication: Product used for unknown indication
     Dosage: UNK (START DATE: 23-JUN-2017)
     Route: 042
     Dates: end: 20171228
  76. ENHERTU [Suspect]
     Active Substance: FAM-TRASTUZUMAB DERUXTECAN-NXKI
     Indication: HER2 positive breast cancer
     Dosage: 451.5 MILLIGRAM, Q3W, START 31-JAN-2018
     Route: 042
  77. ENHERTU [Suspect]
     Active Substance: FAM-TRASTUZUMAB DERUXTECAN-NXKI
     Dosage: )420 MILLIGRAM, Q3W (START DATE: 01-JUL-2016
     Route: 042
     Dates: end: 20160727
  78. ENHERTU [Suspect]
     Active Substance: FAM-TRASTUZUMAB DERUXTECAN-NXKI
     Dosage: 567 MILLIGRAM, QD, START 12-JUN-2017
     Route: 042
     Dates: end: 20171228
  79. ENHERTU [Suspect]
     Active Substance: FAM-TRASTUZUMAB DERUXTECAN-NXKI
     Dosage: 567 MILLIGRAM, QD, (LOADING DOSE), START DATE: 09-JUN-2016
     Route: 042
     Dates: end: 20160609
  80. ENHERTU [Suspect]
     Active Substance: FAM-TRASTUZUMAB DERUXTECAN-NXKI
     Dosage: 451.5 MILLIGRAM, Q3W, START 11-NOV-2016
     Route: 042
     Dates: end: 20170519
  81. ENHERTU [Suspect]
     Active Substance: FAM-TRASTUZUMAB DERUXTECAN-NXKI
     Dosage: 473 MILLIGRAM, Q3W, START 28-APR-2017
     Route: 042
     Dates: end: 20170519
  82. ENHERTU [Suspect]
     Active Substance: FAM-TRASTUZUMAB DERUXTECAN-NXKI
     Dosage: 452 MILLIGRAM, Q3W, START 11-NOV-2016
     Route: 042
     Dates: end: 20170519
  83. ENHERTU [Suspect]
     Active Substance: FAM-TRASTUZUMAB DERUXTECAN-NXKI
     Dosage: 473 MILLIGRAM, Q3W, START 19-MAY-2017
     Route: 042
     Dates: end: 20171228
  84. ENHERTU [Suspect]
     Active Substance: FAM-TRASTUZUMAB DERUXTECAN-NXKI
     Dosage: 420 MILLIGRAM, Q3W, START 02-DEC-2016
     Route: 042
     Dates: end: 20170203
  85. ENHERTU [Suspect]
     Active Substance: FAM-TRASTUZUMAB DERUXTECAN-NXKI
     Dosage: 452 MILLIGRAM, Q3W, START 21-OCT-2016
     Route: 042
     Dates: end: 20161111
  86. ENHERTU [Suspect]
     Active Substance: FAM-TRASTUZUMAB DERUXTECAN-NXKI
     Dosage: 441 MILLIGRAM, Q3W, START 07-SEP-2016
     Route: 042
     Dates: end: 20160926
  87. ENHERTU [Suspect]
     Active Substance: FAM-TRASTUZUMAB DERUXTECAN-NXKI
     Dosage: 420 MILLIGRAM, Q3W, START 24-FEB-2017
     Route: 042
     Dates: end: 20170407
  88. ENHERTU [Suspect]
     Active Substance: FAM-TRASTUZUMAB DERUXTECAN-NXKI
     Dosage: 452 MILLIGRAM, Q3W (START 31-AUG-2018)
     Route: 042
  89. ENHERTU [Suspect]
     Active Substance: FAM-TRASTUZUMAB DERUXTECAN-NXKI
     Dosage: 415.5 MILLIGRAM, Q3W (11-NOV-2016)
     Route: 042
     Dates: end: 20170519
  90. ENHERTU [Suspect]
     Active Substance: FAM-TRASTUZUMAB DERUXTECAN-NXKI
     Dosage: 437MG(473 MG,ONCE EVERY 3 WK INJ,)
     Route: 042
  91. ENHERTU [Suspect]
     Active Substance: FAM-TRASTUZUMAB DERUXTECAN-NXKI
     Dosage: 420 MILLIGRAM, Q3W, START DATE: 07-SEP-2016
     Route: 042
     Dates: end: 20160926
  92. ENHERTU [Suspect]
     Active Substance: FAM-TRASTUZUMAB DERUXTECAN-NXKI
     Dosage: 451.5 MILLIGRAM, Q3W (START DATE: 28-APR-2017)
     Route: 042
     Dates: end: 20170519
  93. ENHERTU [Suspect]
     Active Substance: FAM-TRASTUZUMAB DERUXTECAN-NXKI
     Dosage: 472.5MG, Q3W (MOST RECENT DOSE ON 28/DEC/2017)
     Route: 042
  94. ENHERTU [Suspect]
     Active Substance: FAM-TRASTUZUMAB DERUXTECAN-NXKI
     Dosage: 451.5 MILLIGRAM, Q3W (START DATE: 02-DEC-2016)
     Route: 042
     Dates: end: 20170203
  95. ENHERTU [Suspect]
     Active Substance: FAM-TRASTUZUMAB DERUXTECAN-NXKI
     Dosage: 451.5 MILLIGRAM, Q3W (START DATE: 21-OCT-2016(
     Route: 042
     Dates: end: 20161111
  96. ENHERTU [Suspect]
     Active Substance: FAM-TRASTUZUMAB DERUXTECAN-NXKI
     Dosage: 472.5 MILLIGRAM, Q3W (START DATE: 12-JUN-2017)
     Route: 042
  97. ENHERTU [Suspect]
     Active Substance: FAM-TRASTUZUMAB DERUXTECAN-NXKI
     Dosage: 420 MILLIGRAM, Q3W, START 07-SEP-2016
     Route: 042
     Dates: end: 20160926
  98. ENHERTU [Suspect]
     Active Substance: FAM-TRASTUZUMAB DERUXTECAN-NXKI
     Dosage: 420 MILLIGRAM, Q3W, START 1-JUL-2016
     Route: 042
  99. ENHERTU [Suspect]
     Active Substance: FAM-TRASTUZUMAB DERUXTECAN-NXKI
     Dosage: 472.5 MILLIGRAM, Q3W (19-MAY-2017)
     Route: 042
     Dates: end: 20171228
  100. ENHERTU [Suspect]
     Active Substance: FAM-TRASTUZUMAB DERUXTECAN-NXKI
     Dosage: 451.5 MILLIGRAM, Q3W, START DATE: 21-OCT-2016
     Route: 042
     Dates: end: 20161111
  101. ENHERTU [Suspect]
     Active Substance: FAM-TRASTUZUMAB DERUXTECAN-NXKI
     Dosage: 451.5 MG, EVERY 3 WEEKS; INJECTION, POWDER, LYOPHILIZED, FOR SOLUTION
     Route: 042
  102. ENHERTU [Suspect]
     Active Substance: FAM-TRASTUZUMAB DERUXTECAN-NXKI
     Dosage: 420 MILLIGRAM, Q3W
     Route: 042
  103. ENHERTU [Suspect]
     Active Substance: FAM-TRASTUZUMAB DERUXTECAN-NXKI
     Dosage: 452 MILLIGRAM, Q3W (START DATE:28-APR-2017)
     Route: 042
     Dates: end: 20170519
  104. ENHERTU [Suspect]
     Active Substance: FAM-TRASTUZUMAB DERUXTECAN-NXKI
     Dosage: 473 MILLIGRAM, Q3W (START DATE:12-JUN-2017)
     Route: 042
  105. ENHERTU [Suspect]
     Active Substance: FAM-TRASTUZUMAB DERUXTECAN-NXKI
     Dosage: 452 MILLIGRAM, Q3W (START DATE: (2-DEC-2016)
     Route: 042
  106. ENHERTU [Suspect]
     Active Substance: FAM-TRASTUZUMAB DERUXTECAN-NXKI
     Dosage: 567 MILLIGRAM, QD (START DATE: 19-JUN-2016)
     Route: 042
     Dates: end: 20160619
  107. ENHERTU [Suspect]
     Active Substance: FAM-TRASTUZUMAB DERUXTECAN-NXKI
     Dosage: 420 MILLIGRAM, Q3W (START DATE:2-JUN-2016)
     Route: 042
     Dates: end: 20170203
  108. ENHERTU [Suspect]
     Active Substance: FAM-TRASTUZUMAB DERUXTECAN-NXKI
     Dosage: 420 MILLIGRAM, Q3W  (START DATE: 2-DEC-2016)
     Route: 042
     Dates: end: 20170203
  109. ENHERTU [Suspect]
     Active Substance: FAM-TRASTUZUMAB DERUXTECAN-NXKI
     Dosage: 567 MILLIGRAM, QD (START DATE: 9-JUN-2016)
     Route: 042
     Dates: end: 20160609
  110. ENHERTU [Suspect]
     Active Substance: FAM-TRASTUZUMAB DERUXTECAN-NXKI
     Dosage: 437 MILLIGRAM, Q3W  (START DATE: 19-MAY-2017)
     Route: 042
     Dates: end: 20171228
  111. PERTUZUMAB [Suspect]
     Active Substance: PERTUZUMAB
     Indication: HER2 positive breast cancer
     Dosage: 840 MILLIGRAM START DATE: 09-JUN-2016
     Route: 042
  112. PERTUZUMAB [Suspect]
     Active Substance: PERTUZUMAB
     Dosage: 420 MILLIGRAM, MOST RECENT DOSE 28/DEC/2017, START DATE: 01-JUL-2016
     Route: 042
  113. PERTUZUMAB [Suspect]
     Active Substance: PERTUZUMAB
     Dosage: 840 MILLIGRAM, Q3W, START DATE: 09-JUN-2016
     Route: 042
     Dates: end: 20160609
  114. PERTUZUMAB [Suspect]
     Active Substance: PERTUZUMAB
     Dosage: 840 MILLIGRAM, QD, START DATE: 09-JUN-2016
     Route: 042
  115. PERTUZUMAB [Suspect]
     Active Substance: PERTUZUMAB
     Dosage: 420 MILLIGRAM, Q3W, START DATE: 01-JUL-2016
     Route: 042
  116. ADO-TRASTUZUMAB EMTANSINE [Suspect]
     Active Substance: ADO-TRASTUZUMAB EMTANSINE
     Indication: Breast cancer metastatic
     Dosage: 280 MILLIGRAM, Q3W, START DATE: 09-JUN-2016
     Route: 042
     Dates: end: 20160609
  117. ADO-TRASTUZUMAB EMTANSINE [Suspect]
     Active Substance: ADO-TRASTUZUMAB EMTANSINE
     Indication: HER2 positive breast cancer
     Dosage: 441 MILLIGRAM, Q3W, START DATE: 02-FEB-2016
     Route: 042
     Dates: end: 20160203
  118. ADO-TRASTUZUMAB EMTANSINE [Suspect]
     Active Substance: ADO-TRASTUZUMAB EMTANSINE
     Dosage: 420 MILLIGRAM, Q3W, START DATE: 07-SEP-2016
     Route: 042
     Dates: end: 20160926
  119. ADO-TRASTUZUMAB EMTANSINE [Suspect]
     Active Substance: ADO-TRASTUZUMAB EMTANSINE
     Dosage: 430 MILLIGRAM, Q3W, START DATE: 24-JUL-2017
     Route: 042
     Dates: end: 20180407
  120. ADO-TRASTUZUMAB EMTANSINE [Suspect]
     Active Substance: ADO-TRASTUZUMAB EMTANSINE
     Dosage: 280 MILLIGRAM, START: 31JAN2018
     Route: 042
  121. ADO-TRASTUZUMAB EMTANSINE [Suspect]
     Active Substance: ADO-TRASTUZUMAB EMTANSINE
     Dosage: 280 MILLIGRAM Q2W, START: 31JAN2018
     Route: 042
  122. ADO-TRASTUZUMAB EMTANSINE [Suspect]
     Active Substance: ADO-TRASTUZUMAB EMTANSINE
     Dosage: 280 MILLIGRAM, Q3W, START DATE: 31-JAN-2018 00:00
     Route: 042
     Dates: end: 20180131
  123. ADO-TRASTUZUMAB EMTANSINE [Suspect]
     Active Substance: ADO-TRASTUZUMAB EMTANSINE
     Dosage: 280 MILLIGRAM, MOST RECENT DOSE  31JAN2018
     Route: 042
  124. BENZYDAMINE HYDROCHLORIDE [Suspect]
     Active Substance: BENZYDAMINE HYDROCHLORIDE
     Indication: Product used for unknown indication
     Dosage: 130 MILLIGRAM, START DATE: 27-JUL-2017
     Route: 065
  125. BENZYDAMINE HYDROCHLORIDE [Suspect]
     Active Substance: BENZYDAMINE HYDROCHLORIDE
     Dosage: UNK, QD (ONCE A DAY), START DATE: 22-JUL-2016
     Route: 065
     Dates: end: 20160723
  126. BENZYDAMINE HYDROCHLORIDE [Suspect]
     Active Substance: BENZYDAMINE HYDROCHLORIDE
     Dosage: UNK, START DATE: 11-NOV-2016
     Route: 042
     Dates: end: 20161111
  127. BENZYDAMINE HYDROCHLORIDE [Suspect]
     Active Substance: BENZYDAMINE HYDROCHLORIDE
     Dosage: 130 MILLIGRAM (130 MG, ONCE EVERY 3WK) START DATE: 27-JUL-2017
     Route: 065
  128. TRASTUZUMAB DERUXTECAN [Suspect]
     Active Substance: TRASTUZUMAB DERUXTECAN
     Indication: HER2 positive breast cancer
     Dosage: 420 MILLIGRAM, Q3W
     Route: 042
  129. TRASTUZUMAB DERUXTECAN [Suspect]
     Active Substance: TRASTUZUMAB DERUXTECAN
     Dosage: 441 MILLIGRAM, Q3W STAR: 07-SEP-2016
     Route: 042
     Dates: end: 20160926
  130. TRASTUZUMAB DERUXTECAN [Suspect]
     Active Substance: TRASTUZUMAB DERUXTECAN
     Dosage: 452 MILLIGRAM, Q3W, START: 31-AUG-2018
     Route: 042
  131. TRASTUZUMAB DERUXTECAN [Suspect]
     Active Substance: TRASTUZUMAB DERUXTECAN
     Dosage: 473 MILLIGRAM, Q3W, START DATE: 12-JUN-2017
     Route: 042
     Dates: end: 20171228
  132. TRASTUZUMAB DERUXTECAN [Suspect]
     Active Substance: TRASTUZUMAB DERUXTECAN
     Dosage: 440 MILLIGRAM, Q3W, START : 24-FEB-2017
     Route: 042
     Dates: end: 20170407
  133. TRASTUZUMAB DERUXTECAN [Suspect]
     Active Substance: TRASTUZUMAB DERUXTECAN
     Dosage: 473 MILLIGRAM Q3W, START: 19-MAY-2017
     Route: 042
     Dates: end: 20171228
  134. TRASTUZUMAB DERUXTECAN [Suspect]
     Active Substance: TRASTUZUMAB DERUXTECAN
     Dosage: 452 MILLIGRAM, Q3W STAR: 11-NOV-2016
     Route: 042
     Dates: end: 20170519
  135. TRASTUZUMAB DERUXTECAN [Suspect]
     Active Substance: TRASTUZUMAB DERUXTECAN
     Dosage: 452 MILLIGRAM, Q3W START: 02-DEC-2016
     Route: 042
     Dates: end: 20170203
  136. TRASTUZUMAB DERUXTECAN [Suspect]
     Active Substance: TRASTUZUMAB DERUXTECAN
     Dosage: 473 MILLIGRAM, Q3W, START: 28-APR-2017
     Route: 042
     Dates: end: 20170519
  137. FILGRASTIM [Concomitant]
     Active Substance: FILGRASTIM
     Indication: Product used for unknown indication
     Dosage: 300 MICROGRAM (START 31-JUL-2016)
     Route: 065
     Dates: end: 20161112
  138. FILGRASTIM [Concomitant]
     Active Substance: FILGRASTIM
     Dosage: UNK (9-OCT-2016)
     Route: 065
     Dates: end: 20161017
  139. ENOXAPARIN [Concomitant]
     Active Substance: ENOXAPARIN
     Indication: Product used for unknown indication
     Dosage: 40 MILLIGRAM, QD (START DATE: 14-FEB-2018)
     Route: 058
     Dates: end: 20180218
  140. ENOXAPARIN [Concomitant]
     Active Substance: ENOXAPARIN
     Dosage: 1200 MILLIGRAM, QD (START 12-FEB-2018)
     Route: 058
     Dates: end: 20180212
  141. ENOXAPARIN [Concomitant]
     Active Substance: ENOXAPARIN
     Dosage: 40 MILLIGRAM, QD (START 16-JUN-2017)
     Route: 058
     Dates: end: 20170623
  142. ENOXAPARIN [Concomitant]
     Active Substance: ENOXAPARIN
     Dosage: 40 MILLIGRAM, QD (START 14-FEB-2018)
     Route: 058
     Dates: end: 20180214
  143. ENOXAPARIN [Concomitant]
     Active Substance: ENOXAPARIN
     Dosage: 40 MILLIGRAM, QD (START 05-JAN-2018)
     Route: 058
     Dates: end: 20180117
  144. ENOXAPARIN [Concomitant]
     Active Substance: ENOXAPARIN
     Dosage: 40 MILLIGRAM, QD (START 17-AUG-2018)
     Route: 058
     Dates: end: 20180914
  145. ENOXAPARIN [Concomitant]
     Active Substance: ENOXAPARIN
     Dosage: 120 MILLIGRAM, QD (START 12-FEB-2018)
     Route: 058
     Dates: end: 20180212
  146. ENOXAPARIN [Concomitant]
     Active Substance: ENOXAPARIN
     Dosage: 40 MILLIGRAM, QD (START 17-AUG-2016)
     Route: 058
     Dates: end: 20160914
  147. ENOXAPARIN [Concomitant]
     Active Substance: ENOXAPARIN
     Dosage: UNK
     Route: 065
  148. ENOXAPARIN [Concomitant]
     Active Substance: ENOXAPARIN
     Dosage: 40 MILLIGRAM, QD, START 14-FEB-2018
     Route: 058
     Dates: end: 20180218
  149. ENOXAPARIN [Concomitant]
     Active Substance: ENOXAPARIN
     Dosage: UNK, START 14-FEB-2018
     Route: 058
     Dates: end: 20180218
  150. ENOXAPARIN [Concomitant]
     Active Substance: ENOXAPARIN
     Dosage: 40 MILLIGRAM, QD, START 12-FEB-2018
     Route: 058
     Dates: end: 20180212
  151. ENOXAPARIN [Concomitant]
     Active Substance: ENOXAPARIN
     Dosage: 120 MILLIGRAM, QD
     Route: 058
  152. ENOXAPARIN [Concomitant]
     Active Substance: ENOXAPARIN
     Dosage: 40 MILLIGRAM, QD, START: 17-AUG-2016
     Route: 058
     Dates: end: 20160914
  153. ALBUTEROL [Concomitant]
     Active Substance: ALBUTEROL
     Dosage: 2.5 MILLIGRAM (START 16-JUN-2017)
     Route: 055
     Dates: end: 20170618
  154. ALBUTEROL [Concomitant]
     Active Substance: ALBUTEROL
     Dosage: 2.5 MILLIGRAM (START 22-AUG-2016)
     Route: 055
     Dates: end: 20160908
  155. ALBUTEROL [Concomitant]
     Active Substance: ALBUTEROL
     Dosage: UNK (START 22-AUG-2016)
     Route: 055
     Dates: end: 20160908
  156. ALBUTEROL [Concomitant]
     Active Substance: ALBUTEROL
     Dosage: UNK (START 22-AUG-2016)
     Route: 055
     Dates: end: 20160908
  157. ALBUTEROL [Concomitant]
     Active Substance: ALBUTEROL
     Dosage: 3 MILLIGRAM, START 22-AUG-2016
     Route: 065
     Dates: end: 20160908
  158. ALBUTEROL [Concomitant]
     Active Substance: ALBUTEROL
     Dosage: 3 MILLIGRAM, START 16-JUN-2017
     Route: 055
     Dates: end: 20170618
  159. ALBUTEROL [Concomitant]
     Active Substance: ALBUTEROL
     Dosage: UNK, START DATE: 16-JUN-2017
     Route: 055
     Dates: end: 20170618
  160. MEROPENEM [Concomitant]
     Active Substance: MEROPENEM
     Indication: Product used for unknown indication
     Dosage: 1 GRAM (START 09-AUG-2016)
     Route: 042
     Dates: end: 20160817
  161. CALCIUM CARBONATE\CHOLECALCIFEROL [Concomitant]
     Active Substance: CALCIUM CARBONATE\CHOLECALCIFEROL
     Indication: Product used for unknown indication
     Dosage: UNK UNK, QD (0.5 UNK, QD, START 21-JUN-2017)
     Route: 048
  162. CALCIUM CARBONATE\CHOLECALCIFEROL [Concomitant]
     Active Substance: CALCIUM CARBONATE\CHOLECALCIFEROL
     Dosage: UNK(PER 0.5 DAY (START 21-JUN-2017)
     Route: 048
  163. CALCIUM CARBONATE\CHOLECALCIFEROL [Concomitant]
     Active Substance: CALCIUM CARBONATE\CHOLECALCIFEROL
     Dosage: UNK(1, PER 0.5 DAY (START 21-JUN-2017)
     Route: 048
  164. CALCIUM CARBONATE\CHOLECALCIFEROL [Concomitant]
     Active Substance: CALCIUM CARBONATE\CHOLECALCIFEROL
     Dosage: UNK(2, PER 0.5 DAY (START 21-JUN-2017)
     Route: 048
  165. LEVETIRACETAM [Concomitant]
     Active Substance: LEVETIRACETAM
     Indication: Product used for unknown indication
     Dosage: 1 GRAM (START 16-JUN-2017)
     Route: 042
     Dates: end: 20170616
  166. LEVETIRACETAM [Concomitant]
     Active Substance: LEVETIRACETAM
     Dosage: 500 MILLIGRAM, BID (START 17-JUN-2017)
     Route: 042
  167. LEVETIRACETAM [Concomitant]
     Active Substance: LEVETIRACETAM
     Dosage: 1000 MILLIGRAM, QD (START 17-JUN-2017)
     Route: 048
  168. LEVETIRACETAM [Concomitant]
     Active Substance: LEVETIRACETAM
     Dosage: 500 MILLIGRAM, BID (START 17-JUN-2017)
     Route: 058
  169. LEVETIRACETAM [Concomitant]
     Active Substance: LEVETIRACETAM
     Dosage: 1 GRAM, START 17-JUN-2017
     Route: 048
  170. LEVETIRACETAM [Concomitant]
     Active Substance: LEVETIRACETAM
     Dosage: UNK
     Route: 065
  171. LEVETIRACETAM [Concomitant]
     Active Substance: LEVETIRACETAM
     Dosage: 500 MILLIGRAM(500 MG PER 0.5 DAY)
     Route: 058
  172. RANITIDINE [Concomitant]
     Active Substance: RANITIDINE
     Indication: Product used for unknown indication
     Dosage: 50 MILLIGRAM (START 17-JUN-2017)
     Route: 048
     Dates: end: 20170618
  173. RANITIDINE [Concomitant]
     Active Substance: RANITIDINE
     Dosage: 50 MILLIGRAM(50 MG (DOSE FORM: 245
     Route: 048
     Dates: end: 20170618
  174. COTRIMOXAZOLE [Concomitant]
     Active Substance: SULFAMETHOXAZOLE\TRIMETHOPRIM
     Indication: Product used for unknown indication
     Dosage: 483 MILLIGRAM (START 31-JAN-2018)
     Route: 048
     Dates: end: 20180131
  175. COTRIMOXAZOLE [Concomitant]
     Active Substance: SULFAMETHOXAZOLE\TRIMETHOPRIM
     Dosage: 483 MILLIGRAM (START 31-JAN-2018)
     Route: 048
     Dates: end: 20180131
  176. COTRIMOXAZOLE [Concomitant]
     Active Substance: SULFAMETHOXAZOLE\TRIMETHOPRIM
     Dosage: 483 MILLIGRAM (START 31-JAN-2018)
     Route: 065
  177. COTRIMOXAZOLE [Concomitant]
     Active Substance: SULFAMETHOXAZOLE\TRIMETHOPRIM
     Dosage: 483 MILLIGRAM (START 31-JAN-2018)
     Route: 065
     Dates: end: 20180131
  178. METOCLOPRAMIDE [Concomitant]
     Active Substance: METOCLOPRAMIDE
     Indication: Product used for unknown indication
     Dosage: 10 MILLIGRAM (START 10-JUN-2016)
     Route: 048
     Dates: end: 20161111
  179. METOCLOPRAMIDE [Concomitant]
     Active Substance: METOCLOPRAMIDE
     Dosage: 10 MILLIGRAM, START 31-JAN-2018
     Route: 048
  180. METOCLOPRAMIDE [Concomitant]
     Active Substance: METOCLOPRAMIDE
     Dosage: 10 MILLIGRAM, START DATE: 10-JAN-2016
     Route: 048
     Dates: end: 20161111
  181. METOCLOPRAMIDE [Concomitant]
     Active Substance: METOCLOPRAMIDE
     Dosage: 10 MILLIGRAM (6-JAN-2018)
     Route: 048
     Dates: end: 20180106
  182. METOCLOPRAMIDE [Concomitant]
     Active Substance: METOCLOPRAMIDE
     Indication: Product used for unknown indication
     Dosage: 10 MILLIGRAM (START DATE 06-JAN-2018)
     Route: 042
     Dates: end: 20180106
  183. AMOXICILLIN [Concomitant]
     Active Substance: AMOXICILLIN
     Indication: Product used for unknown indication
     Dosage: UNK, QD (START DEC-2017)
     Route: 048
     Dates: end: 201712
  184. CHLORPHENIRAMINE MALEATE [Concomitant]
     Active Substance: CHLORPHENIRAMINE MALEATE
     Indication: Product used for unknown indication
     Dosage: 10 MILLIGRAM (START 07-SEP-2016)
     Route: 042
     Dates: end: 20160907
  185. CHLORPHENIRAMINE MALEATE [Concomitant]
     Active Substance: CHLORPHENIRAMINE MALEATE
     Dosage: 10 MILLIGRAM (28-SEP-2016)
     Route: 042
     Dates: end: 20170724
  186. HYDROCORTISONE [Concomitant]
     Active Substance: HYDROCORTISONE
     Indication: Product used for unknown indication
     Dosage: 100 MILLIGRAM (START 07-SEP-2016)
     Route: 042
     Dates: end: 20160907
  187. HYDROCORTISONE [Concomitant]
     Active Substance: HYDROCORTISONE
     Dosage: 100 MILLIGRAM (START 28-SEP-2016)
     Route: 042
  188. HYDROCORTISONE [Concomitant]
     Active Substance: HYDROCORTISONE
     Dosage: 100 MILLIGRAM
     Route: 042
  189. HYDROCORTISONE [Concomitant]
     Active Substance: HYDROCORTISONE
     Dosage: 500 MILLIGRAM PER 0.5 DAY (START: 17-JUN-2017)
     Route: 042
  190. MORPHINE SULFATE [Concomitant]
     Active Substance: MORPHINE SULFATE
     Indication: Product used for unknown indication
     Dosage: 2.5 MILLIGRAM (START 28-AUG-2016)
     Route: 048
  191. MORPHINE SULFATE [Concomitant]
     Active Substance: MORPHINE SULFATE
     Dosage: UNK (START 28-AUG-2016)
     Route: 048
  192. MORPHINE SULFATE [Concomitant]
     Active Substance: MORPHINE SULFATE
     Dosage: 15 MILLIGRAM(15 MG, EVERY 12 HOUR/15 MG, BID), START 13-FEB-2018
     Route: 048
     Dates: end: 20180217
  193. MORPHINE SULFATE [Concomitant]
     Active Substance: MORPHINE SULFATE
     Dosage: 2.5 MILLIGRAM(2.5 MG)START DATE: 28-AUG-2016)
     Route: 048
  194. SULFAMETHOXAZOLE\TRIMETHOPRIM [Concomitant]
     Active Substance: SULFAMETHOXAZOLE\TRIMETHOPRIM
     Indication: Product used for unknown indication
     Dosage: 2112 MILLIGRAM (START 11-AUG-2016)
     Route: 042
     Dates: end: 20160816
  195. CODEINE PHOSPHATE [Concomitant]
     Active Substance: CODEINE PHOSPHATE
     Dosage: 10 MILLILITER (START 19-JUN-2017)
     Route: 048
     Dates: end: 20170619
  196. LEVOMEPROMAZINE [Concomitant]
     Active Substance: LEVOMEPROMAZINE
     Indication: Product used for unknown indication
     Dosage: 6.25 MILLIGRAM (START 17-JUN-2017)
     Route: 058
     Dates: end: 20170617
  197. LEVOMEPROMAZINE [Concomitant]
     Active Substance: LEVOMEPROMAZINE
     Dosage: UNK (START 08-SEP-2017)
     Route: 065
     Dates: end: 20170925
  198. LEVOMEPROMAZINE [Concomitant]
     Active Substance: LEVOMEPROMAZINE
     Dosage: 6 MILLIGRAM, QD
     Route: 058
  199. LEVOMEPROMAZINE [Concomitant]
     Active Substance: LEVOMEPROMAZINE
     Dosage: 6 MILLIGRAM, START 17-JUN-2017
     Route: 058
     Dates: end: 20170617
  200. LEVOMEPROMAZINE [Concomitant]
     Active Substance: LEVOMEPROMAZINE
     Dosage: 6 MILLIGRAM QD, START 17-JUN-2017
     Route: 058
     Dates: end: 20170617
  201. LEVOMEPROMAZINE [Concomitant]
     Active Substance: LEVOMEPROMAZINE
     Dosage: UNK, START DATE: 17-JUN-2017
     Route: 058
     Dates: end: 20170617
  202. ZOPICLONE [Concomitant]
     Active Substance: ZOPICLONE
     Dosage: 3.75 MILLIGRAM (START 18-JUN-2017)
     Route: 048
     Dates: end: 20170619
  203. ZOPICLONE [Concomitant]
     Active Substance: ZOPICLONE
     Dosage: 4 MILLIGRAM, START 18-JUN-2017
     Route: 048
     Dates: end: 20170619
  204. SODIUM CHLORIDE [Concomitant]
     Active Substance: SODIUM CHLORIDE
     Indication: Product used for unknown indication
     Dosage: 58.75 MILLILITER (START 05-JAN-2018)
     Route: 042
     Dates: end: 20180105
  205. SODIUM CHLORIDE [Concomitant]
     Active Substance: SODIUM CHLORIDE
     Dosage: 58.75 MILLILITER (START 12-FEB-2018)
     Route: 042
     Dates: end: 20180214
  206. SODIUM CHLORIDE [Concomitant]
     Active Substance: SODIUM CHLORIDE
     Dosage: 58.75 MILLILITER (START 16-JUN-2017)
     Route: 042
     Dates: end: 20170623
  207. SODIUM CHLORIDE [Concomitant]
     Active Substance: SODIUM CHLORIDE
     Dosage: 58.75 MILLILITER (START 16-JUN-2017)
     Route: 042
     Dates: end: 20170616
  208. SODIUM CHLORIDE [Concomitant]
     Active Substance: SODIUM CHLORIDE
     Dosage: UNK
     Route: 042
  209. SODIUM CHLORIDE [Concomitant]
     Active Substance: SODIUM CHLORIDE
     Dosage: UNK (START 12-FEB-2018)
     Route: 042
     Dates: end: 20180214
  210. SODIUM CHLORIDE [Concomitant]
     Active Substance: SODIUM CHLORIDE
     Indication: Product used for unknown indication
     Dosage: 5 MILLILITER, QW (EVERY 4 WEEK) (START 16-JUN-2017)
     Route: 055
     Dates: end: 20170623
  211. SODIUM CHLORIDE [Concomitant]
     Active Substance: SODIUM CHLORIDE
     Dosage: 58.75 MILLIGRAM, 05-JAN-2018
     Route: 055
     Dates: end: 20180105
  212. SODIUM CHLORIDE [Concomitant]
     Active Substance: SODIUM CHLORIDE
     Dosage: 58.75 MILLIGRAM, 12-FEB-2018
     Route: 055
     Dates: end: 20180214
  213. SODIUM CHLORIDE [Concomitant]
     Active Substance: SODIUM CHLORIDE
     Dosage: 5 MILLIGRAM, Q28D 5 MILLIGRAM, Q4WK, START DATE: 15-JUN-2017
     Route: 055
     Dates: end: 20170628
  214. SODIUM CHLORIDE [Concomitant]
     Active Substance: SODIUM CHLORIDE
     Dosage: 59 MILLIGRAM, 05-JAN-2018
     Route: 055
     Dates: end: 20180105
  215. SODIUM CHLORIDE [Concomitant]
     Active Substance: SODIUM CHLORIDE
     Dosage: 59 MILLIGRAM, 12-FEB-2018
     Route: 055
     Dates: end: 20180214
  216. HERBALS\SENNOSIDES [Concomitant]
     Active Substance: HERBALS\SENNOSIDES
     Indication: HER2 positive breast cancer
     Dosage: 15 MILLIGRAM, QD (START 22-JUL-2016)
     Route: 065
  217. HERBALS\SENNOSIDES [Concomitant]
     Active Substance: HERBALS\SENNOSIDES
     Dosage: 15 MILLIGRAM, QD (START 22-JUL-2016)
     Route: 048
     Dates: end: 20161011
  218. CIPROFLOXACIN [Concomitant]
     Active Substance: CIPROFLOXACIN
     Indication: Product used for unknown indication
     Dosage: UNK, QD (START 09-OCT-2016)
     Route: 065
     Dates: end: 20161009
  219. CIPROFLOXACIN [Concomitant]
     Active Substance: CIPROFLOXACIN
     Dosage: 15 MILLIGRAM, QD
     Route: 065
  220. CIPROFLOXACIN [Concomitant]
     Active Substance: CIPROFLOXACIN
     Dosage: 500 MILLIGRAM (14-FEB-2018)
     Route: 048
     Dates: end: 20180301
  221. CLARITHROMYCIN [Concomitant]
     Active Substance: CLARITHROMYCIN
     Indication: Product used for unknown indication
     Dosage: 500 MILLIGRAM (START 14-FEB-2018)
     Route: 048
     Dates: end: 20180301
  222. ENOXAPARIN SODIUM [Concomitant]
     Active Substance: ENOXAPARIN SODIUM
     Indication: Product used for unknown indication
     Dosage: 110 MILLIGRAM, QD (25-AUG-2016)
     Route: 058
     Dates: end: 20160914
  223. ENOXAPARIN SODIUM [Concomitant]
     Active Substance: ENOXAPARIN SODIUM
     Dosage: 40 MILLIGRAM, QD (START DATE: 23-JUL-2016)
     Route: 065
     Dates: end: 20160723
  224. AMOXICILLIN\CLAVULANATE POTASSIUM [Concomitant]
     Active Substance: AMOXICILLIN\CLAVULANATE POTASSIUM
     Dosage: 1.2 GRAM, BID (START 14-FEB-2018)
     Route: 042
     Dates: end: 20180214
  225. AMOXICILLIN\CLAVULANATE POTASSIUM [Concomitant]
     Active Substance: AMOXICILLIN\CLAVULANATE POTASSIUM
     Dosage: 625 MILLIGRAM, TID (625 MILLIGRAM 3/DAY)
     Route: 065
     Dates: end: 20180301
  226. AMOXICILLIN\CLAVULANATE POTASSIUM [Concomitant]
     Active Substance: AMOXICILLIN\CLAVULANATE POTASSIUM
     Dosage: 1875 MILLIGRAM, QD (START 15-FEB-2018)
     Route: 065
     Dates: end: 20180301
  227. AMOXICILLIN\CLAVULANATE POTASSIUM [Concomitant]
     Active Substance: AMOXICILLIN\CLAVULANATE POTASSIUM
     Dosage: 2.4 GRAM, BID (1.2 GRAM, BID (START 14-FEB-2018)
     Route: 042
     Dates: end: 20180214
  228. AMOXICILLIN\CLAVULANATE POTASSIUM [Concomitant]
     Active Substance: AMOXICILLIN\CLAVULANATE POTASSIUM
     Dosage: 1875 MILLIGRAM(1875 MILLIGRAM, QD (START 14-FEB-2018))
     Route: 065
     Dates: end: 20180214
  229. AMOXICILLIN\CLAVULANATE POTASSIUM [Concomitant]
     Active Substance: AMOXICILLIN\CLAVULANATE POTASSIUM
     Dosage: 2.4 MILLIGRAM(2.4 MG QD [1.2 GRAM, BID (START 14-FEB-2018)]
     Route: 042
     Dates: end: 20180301
  230. AMOXICILLIN\CLAVULANATE POTASSIUM [Concomitant]
     Active Substance: AMOXICILLIN\CLAVULANATE POTASSIUM
     Dosage: 4.8 GRAM(1.2 GRAM, BID (START 14-FEB-2018)
     Route: 042
     Dates: end: 20180214
  231. AMOXICILLIN\CLAVULANATE POTASSIUM [Concomitant]
     Active Substance: AMOXICILLIN\CLAVULANATE POTASSIUM
     Dosage: 5625MG(625MG, TID (625 MILLIGRAM 3/DAY)
     Route: 065
     Dates: end: 20180301
  232. AMOXICILLIN\CLAVULANATE POTASSIUM [Concomitant]
     Active Substance: AMOXICILLIN\CLAVULANATE POTASSIUM
     Dosage: 1875 MILLIGRAM, QD, START: 01-MAR-2018
     Route: 065
  233. CYCLIZINE [Concomitant]
     Active Substance: CYCLIZINE
     Indication: Product used for unknown indication
     Dosage: 50 MILLIGRAM, TID (50 MILLIGRAM 3/DAY,
     Route: 048
  234. CYCLIZINE [Concomitant]
     Active Substance: CYCLIZINE
     Dosage: 150 MILLIGRAM, QD 50 MG TID (START 02-SEP-2017)
     Route: 048
  235. CYCLIZINE [Concomitant]
     Active Substance: CYCLIZINE
     Dosage: 150MG, TID (50MG, TID (50MG3/DAY,
     Route: 048
  236. CYCLIZINE [Concomitant]
     Active Substance: CYCLIZINE
     Dosage: 450MG(50MG, TID (50MG3/DAY, START 02-SEP-2017)
     Route: 048
  237. DEXAMETHASONE [Concomitant]
     Active Substance: DEXAMETHASONE
     Dosage: 8 MILLIGRAM (START 10-JUN-2016)
     Route: 048
     Dates: end: 20160611
  238. DEXAMETHASONE [Concomitant]
     Active Substance: DEXAMETHASONE
     Dosage: 1 DOSAGE FORM, QD, START 05-AUG-2016
     Route: 048
     Dates: end: 201609
  239. DEXAMETHASONE [Concomitant]
     Active Substance: DEXAMETHASONE
     Dosage: 4 MILLIGRAM, QD, START 10-JAN-2018
     Route: 048
  240. DEXAMETHASONE [Concomitant]
     Active Substance: DEXAMETHASONE
     Dosage: 8 MILLIGRAM, QD, START 03-AUG-2016
     Route: 042
     Dates: end: 20160805
  241. DEXAMETHASONE [Concomitant]
     Active Substance: DEXAMETHASONE
     Dosage: 2 MILLIGRAM, QD, START 02-SEP-2017
     Route: 048
     Dates: end: 20180110
  242. DEXAMETHASONE [Concomitant]
     Active Substance: DEXAMETHASONE
     Dosage: 4 MILLIGRAM, BID, START 16-JUN-2017
     Route: 048
     Dates: end: 20170902
  243. DEXAMETHASONE [Concomitant]
     Active Substance: DEXAMETHASONE
     Dosage: 8 MILLIGRAM, START 16-JUN-2017
     Route: 042
     Dates: end: 20170616
  244. DEXAMETHASONE [Concomitant]
     Active Substance: DEXAMETHASONE
     Dosage: 2 MILLIGRAM, QD, START 11-JAN-2018
     Route: 048
  245. DEXAMETHASONE [Concomitant]
     Active Substance: DEXAMETHASONE
     Dosage: 4 MILLIGRAM, BID (22-JUL-2016)
     Route: 048
     Dates: end: 20160723
  246. DEXAMETHASONE [Concomitant]
     Active Substance: DEXAMETHASONE
     Dosage: 8 MILLIGRAM (START 10-JUN-2016)
     Route: 048
     Dates: end: 20160610
  247. DEXAMETHASONE [Concomitant]
     Active Substance: DEXAMETHASONE
     Dosage: 2 MILLIGRAM, QD, START 11-JAN-2020
     Route: 048
  248. DEXAMETHASONE [Concomitant]
     Active Substance: DEXAMETHASONE
     Dosage: 40 MILLIGRAM, BID, START 22-JUL-2016
     Route: 048
     Dates: end: 20160723
  249. DEXAMETHASONE [Concomitant]
     Active Substance: DEXAMETHASONE
     Dosage: UNK (QD) (5-AUG-2016)
     Route: 048
     Dates: end: 201609
  250. DEXAMETHASONE [Concomitant]
     Active Substance: DEXAMETHASONE
     Dosage: 1 DOSAGE FORM, QD, START 05-AUG-2019
     Route: 048
     Dates: end: 201909
  251. BENZYDAMINE [Concomitant]
     Active Substance: BENZYDAMINE
     Indication: Product used for unknown indication
     Dosage: UNK, START DATE: 22-JUL-2016
     Route: 065
     Dates: end: 20160723
  252. BENZYDAMINE [Concomitant]
     Active Substance: BENZYDAMINE
     Dosage: 40 MILLIGRAM
     Route: 065
  253. BENZYDAMINE [Concomitant]
     Active Substance: BENZYDAMINE
     Dosage: 110 MILLIGRAM (START 25-AUG-2016)
     Route: 065
     Dates: end: 20160914
  254. BENZYDAMINE [Concomitant]
     Active Substance: BENZYDAMINE
     Dosage: UNK (22-JUL-2016)
     Route: 065
     Dates: end: 20170619
  255. BENZYDAMINE [Concomitant]
     Active Substance: BENZYDAMINE
     Dosage: UNK QD (22-JUL-2016)
     Route: 048
     Dates: end: 20160723
  256. DOCUSATE [Concomitant]
     Active Substance: DOCUSATE
     Indication: Product used for unknown indication
     Dosage: 20 MILLIGRAM, QD, START DATE: 22-JUL-2016
     Route: 048
     Dates: end: 20160724
  257. GENTAMICIN [Concomitant]
     Active Substance: GENTAMICIN
     Indication: Product used for unknown indication
     Dosage: 375MG, QD (375MG, QD, START 09-OCT-2016)
     Route: 042
     Dates: end: 20161009
  258. GENTAMICIN [Concomitant]
     Active Substance: GENTAMICIN
     Dosage: 800 MILLIGRAM, QD 400 MG BID (START DATE: 12-FEB-2018)
     Route: 042
     Dates: end: 20180212
  259. GENTAMICIN [Concomitant]
     Active Substance: GENTAMICIN
     Dosage: 800 MILLIGRAM, BID(400 MG, BID,START12-FEB-2018)
     Route: 042
     Dates: end: 20180212
  260. GENTAMICIN [Concomitant]
     Active Substance: GENTAMICIN
     Dosage: 1600 MILLIGRAM(400 MILLIGRAM, BID, 12-FEB-2018 )
     Route: 042
     Dates: end: 20180212
  261. LANSOPRAZOLE [Concomitant]
     Active Substance: LANSOPRAZOLE
     Indication: Product used for unknown indication
     Dosage: 30 MILLIGRAM, QD, START DATE: 22-JUL-2016
     Route: 048
     Dates: end: 20160724
  262. LANSOPRAZOLE [Concomitant]
     Active Substance: LANSOPRAZOLE
     Dosage: 30 MILLIGRAM, QD, START 09-AUG-2016
     Route: 048
  263. LANSOPRAZOLE [Concomitant]
     Active Substance: LANSOPRAZOLE
     Dosage: 30 MILLIGRAM, QD, START 10-OCT-2016
     Route: 048
  264. LEVOFLOXACIN [Concomitant]
     Active Substance: LEVOFLOXACIN
     Indication: Product used for unknown indication
     Dosage: UNK (START 09-OCT-2016)
     Route: 065
     Dates: end: 20161010
  265. LEVOFLOXACIN [Concomitant]
     Active Substance: LEVOFLOXACIN
     Dosage: UNK (START 09-OCT-2016)
     Route: 065
     Dates: end: 20161017
  266. ONDANSETRON [Concomitant]
     Active Substance: ONDANSETRON
     Indication: Product used for unknown indication
     Dosage: 8 MILLIGRAM (8 MILLIGRAM 3/D, START 02-SEP-2017)
     Route: 048
  267. ONDANSETRON [Concomitant]
     Active Substance: ONDANSETRON
     Dosage: 8 MILLIGRAM (8 MILLIGRAM 3/D, START 16-JUN-2017)
     Route: 048
     Dates: end: 20170626
  268. ONDANSETRON [Concomitant]
     Active Substance: ONDANSETRON
     Dosage: 24 MILLIGRAM, TID (8 MG, TID), START DATE:16-JUN-2016
     Route: 048
     Dates: end: 20160626
  269. ONDANSETRON [Concomitant]
     Active Substance: ONDANSETRON
     Dosage: 72 MILLIGRAM(8 MG, TID), START 16-JUN-2017
     Route: 048
     Dates: end: 20170626
  270. ONDANSETRON [Concomitant]
     Active Substance: ONDANSETRON
     Dosage: 24 MILLIGRAM(24 MG, QD (8 MG, TID)START16-JUN-2017  )
     Route: 048
     Dates: end: 20170626
  271. VANCOMYCIN [Concomitant]
     Active Substance: VANCOMYCIN
     Indication: Product used for unknown indication
     Dosage: UNK (START 09-OCT-2016)
     Route: 048
     Dates: end: 20161009
  272. VANCOMYCIN [Concomitant]
     Active Substance: VANCOMYCIN
     Dosage: UNK, START 09-OCT-2018
     Route: 048
     Dates: end: 20181009
  273. OSELTAMIVIR [Concomitant]
     Active Substance: OSELTAMIVIR
     Indication: Product used for unknown indication
     Dosage: 15 MILLIGRAM, BID (START 13-FEB-2018)
     Route: 048
     Dates: end: 20180218
  274. OSELTAMIVIR [Concomitant]
     Active Substance: OSELTAMIVIR
     Dosage: 15 MILLIGRAM, BID (START 13-FEB-2018)
     Route: 048
     Dates: end: 20180217
  275. OSELTAMIVIR [Concomitant]
     Active Substance: OSELTAMIVIR
     Dosage: 30 MILLIGRAM, BID, 15 MG, BID (START 13-FEB-2018)
     Route: 048
     Dates: end: 20180217
  276. OSELTAMIVIR [Concomitant]
     Active Substance: OSELTAMIVIR
     Dosage: 60 MILLIGRAM(15 MG, BID), START 13-FEB-2018
     Route: 065
     Dates: end: 20180217
  277. ACETAMINOPHEN [Concomitant]
     Active Substance: ACETAMINOPHEN
     Indication: Product used for unknown indication
     Dosage: 1 GRAM, QD, START DATE: 22-JUL-2016
     Route: 048
     Dates: end: 20160724
  278. ACETAMINOPHEN [Concomitant]
     Active Substance: ACETAMINOPHEN
     Dosage: 1 GRAM, START 03-SEP-2017
     Route: 048
  279. ACETAMINOPHEN [Concomitant]
     Active Substance: ACETAMINOPHEN
     Dosage: 5 GRAM, START 03-AUG-2016
     Route: 048
  280. ACETAMINOPHEN [Concomitant]
     Active Substance: ACETAMINOPHEN
     Dosage: 1 MILLIGRAM, START 23-JUL-2016
     Route: 048
     Dates: end: 20160724
  281. ACETAMINOPHEN [Concomitant]
     Active Substance: ACETAMINOPHEN
     Dosage: 5 GRAM (03-AUG-2016)
     Route: 048
  282. ACETAMINOPHEN [Concomitant]
     Active Substance: ACETAMINOPHEN
     Dosage: UNK
     Route: 065
  283. RAMIPRIL [Concomitant]
     Active Substance: RAMIPRIL
     Indication: Product used for unknown indication
     Dosage: 2.3 MILLIGRAM, QD, START DATE: 22-JUL-2016
     Route: 048
  284. RAMIPRIL [Concomitant]
     Active Substance: RAMIPRIL
     Dosage: 2.3 MILLIGRAM
     Route: 048
  285. RAMIPRIL [Concomitant]
     Active Substance: RAMIPRIL
     Dosage: 2 MILLIGRAM, START DATE:22-JUL-2016
     Route: 065
  286. PIPERACILLIN SODIUM\TAZOBACTAM SODIUM [Concomitant]
     Active Substance: PIPERACILLIN SODIUM\TAZOBACTAM SODIUM
     Dosage: 4.5 MILLIGRAM TID (4.5 MILLIGRAM 3/D) (START 12-FEB-2018)
     Route: 065
     Dates: end: 20180214
  287. PIPERACILLIN SODIUM\TAZOBACTAM SODIUM [Concomitant]
     Active Substance: PIPERACILLIN SODIUM\TAZOBACTAM SODIUM
     Dosage: 13.5 GRAM(13.5 G), START 12-FEB-2018
     Route: 048
     Dates: end: 20180214
  288. TRIMETHOPRIM [Concomitant]
     Active Substance: TRIMETHOPRIM
     Dosage: 50 MILLIGRAM, TID (START 02-SEP-2017)
     Route: 065
  289. TRIMETHOPRIM [Concomitant]
     Active Substance: TRIMETHOPRIM
     Dosage: 2112 MILLIGRAM, START 11-AUG-2016
     Route: 042
     Dates: end: 20160816
  290. TRIMETHOPRIM [Concomitant]
     Active Substance: TRIMETHOPRIM
     Dosage: 483 MILLIGRAM, QD, START: 31-JAN-2018
     Route: 065
     Dates: end: 20180131
  291. CODEINE [Concomitant]
     Active Substance: CODEINE
     Indication: Product used for unknown indication
     Dosage: UNK
     Route: 065
  292. CODEINE [Concomitant]
     Active Substance: CODEINE
     Dosage: 10 MILLILITER, START 19-JUN-2017
     Route: 048
     Dates: end: 20170619
  293. PIPERACILLIN SODIUM [Concomitant]
     Active Substance: PIPERACILLIN SODIUM
     Indication: Product used for unknown indication
     Dosage: 13.5 MILLIGRAM, QD (4.5 MG TID), START 12-FEB-2018
     Route: 065
     Dates: end: 20180214
  294. PIPERACILLIN SODIUM [Concomitant]
     Active Substance: PIPERACILLIN SODIUM
     Dosage: 4.5 MG, TID, START DATE: 12-FEB-2018
     Route: 065
     Dates: end: 20180214
  295. ZOPICLONE [Concomitant]
     Active Substance: ZOPICLONE
     Indication: Product used for unknown indication
     Dosage: 3.75 MILLIGRAM, START 18-JUN-2017
     Route: 048
     Dates: end: 20170619
  296. ZOPICLONE [Concomitant]
     Active Substance: ZOPICLONE
     Dosage: 4 MILLIGRAM, START 18-JUN-2017
     Route: 048
     Dates: end: 20170619
  297. SENNA [Concomitant]
     Active Substance: SENNA LEAF\SENNOSIDES\SENNOSIDES A AND B
     Indication: HER2 positive breast cancer
     Dosage: 15 MILLIGRAM, QD START DATE: 22-JUL-2016
     Route: 065
  298. SENNA [Concomitant]
     Active Substance: SENNA LEAF\SENNOSIDES\SENNOSIDES A AND B
     Dosage: 15 MILLIGRAM, QD, START DATE: 22-JUL-2016
     Route: 042
     Dates: end: 20161011
  299. CIPROFLOXACIN HYDROCHLORIDE [Concomitant]
     Active Substance: CIPROFLOXACIN HYDROCHLORIDE
     Dosage: 15 MILLIGRAM, QD
     Route: 048
  300. CIPROFLOXACIN HYDROCHLORIDE [Concomitant]
     Active Substance: CIPROFLOXACIN HYDROCHLORIDE
     Dosage: 15 MILLIGRAM
     Route: 065
  301. CLARITHROMYCIN LACTOBIONATE [Concomitant]
     Active Substance: CLARITHROMYCIN LACTOBIONATE
     Dosage: 500 MILLIGRAM. START DATE: 14-FEB-2018
     Route: 048
     Dates: end: 20180301
  302. DICLOFENAC POTASSIUM [Concomitant]
     Active Substance: DICLOFENAC POTASSIUM
     Dosage: UNK UNK, QD., START DATE: 22-JUL-2016
     Route: 048
     Dates: end: 20160723
  303. MORPHINE SULFATE [Concomitant]
     Active Substance: MORPHINE SULFATE
     Dosage: 15 MILLIGRAM, BID, 15 MG, EVERY 12 HOURS, START DATE: 13-FEB-2018
     Route: 048
     Dates: end: 20180217
  304. SENNA LEAF [Concomitant]
     Active Substance: SENNA LEAF
     Dosage: UNK, START DATE: 22-JUL-2016 00:00
     Route: 065

REACTIONS (18)
  - Disease progression [Fatal]
  - Condition aggravated [Fatal]
  - Back pain [Fatal]
  - Hyponatraemia [Fatal]
  - Seizure [Fatal]
  - Chest pain [Fatal]
  - Nausea [Fatal]
  - Vomiting [Fatal]
  - Diarrhoea [Fatal]
  - Excessive eye blinking [Fatal]
  - Pneumonia [Fatal]
  - Lower respiratory tract infection [Fatal]
  - Dyspnoea [Fatal]
  - Ejection fraction decreased [Fatal]
  - Pain in jaw [Fatal]
  - Deep vein thrombosis [Fatal]
  - Off label use [Fatal]
  - Product use issue [Unknown]

NARRATIVE: CASE EVENT DATE: 20160722
